FAERS Safety Report 21946949 (Version 1)
Quarter: 2023Q1

REPORT INFORMATION
  Report Type: Spontaneous
  Country: US (occurrence: None)
  Receive Date: 20230202
  Receipt Date: 20230202
  Transmission Date: 20230417
  Serious: Yes (Hospitalization, Other)
  Sender: FDA-Public Use
  Company Number: None

PATIENT
  Age: 66 Year
  Sex: Female

DRUGS (10)
  1. LAGEVRIO [Suspect]
     Active Substance: MOLNUPIRAVIR
     Indication: COVID-19
     Dosage: OTHER QUANTITY : 4 TABLET(S);?FREQUENCY : TWICE A DAY;?
     Route: 048
     Dates: start: 20230111, end: 20230117
  2. CRESTOR [Concomitant]
     Active Substance: ROSUVASTATIN CALCIUM
  3. LEXAPRO [Concomitant]
     Active Substance: ESCITALOPRAM OXALATE
  4. SINGULAIR [Concomitant]
     Active Substance: MONTELUKAST SODIUM
  5. GABAPENTIN [Concomitant]
     Active Substance: GABAPENTIN
  6. PRIMIDONE [Concomitant]
     Active Substance: PRIMIDONE
  7. CILOSTAZOL [Concomitant]
     Active Substance: CILOSTAZOL
  8. OXYCODONE [Concomitant]
     Active Substance: OXYCODONE
  9. ACETAMINOPHEN [Concomitant]
     Active Substance: ACETAMINOPHEN
  10. FIBER [Concomitant]

REACTIONS (2)
  - Foreign body in throat [None]
  - Burn oesophageal [None]

NARRATIVE: CASE EVENT DATE: 20230118
